FAERS Safety Report 13690792 (Version 1)
Quarter: 2017Q2

REPORT INFORMATION
  Report Type: Report from Study
  Country: US (occurrence: BR)
  Receive Date: 20170626
  Receipt Date: 20170626
  Transmission Date: 20170830
  Serious: Yes (Other)
  Sender: FDA-Public Use
  Company Number: US-SUNOVION-2017SUN002658

PATIENT
  Sex: Male
  Weight: 87 kg

DRUGS (1)
  1. INDACATEROL AND GLYCOPYRROLATE [Suspect]
     Active Substance: GLYCOPYRROLATE\INDACATEROL MALEATE
     Indication: PRODUCT USED FOR UNKNOWN INDICATION
     Dosage: UNK
     Route: 065
     Dates: start: 20170315

REACTIONS (6)
  - Anxiety [Unknown]
  - Tremor [Unknown]
  - Nervousness [Unknown]
  - Parkinson^s disease [Unknown]
  - Lung disorder [Unknown]
  - Influenza [Unknown]
